FAERS Safety Report 8153055-5 (Version None)
Quarter: 2012Q1

REPORT INFORMATION
  Report Type: 
  Country: None (occurrence: None)
  Receive Date: 20120221
  Receipt Date: 20120215
  Transmission Date: 20120608
  Serious: Yes (Hospitalization, Other)
  Sender: FDA-Public Use
  Company Number: JP-PFIZER INC-2011307271

PATIENT
  Age: 78 Year
  Sex: Male

DRUGS (5)
  1. MICARDIS [Concomitant]
     Dosage: UNK
     Dates: start: 20110101
  2. LYRICA [Suspect]
     Indication: CERVICOBRACHIAL SYNDROME
     Dosage: 75 MG, 1X/DAY
     Route: 048
     Dates: start: 20111031, end: 20111130
  3. CARVEDILOL [Concomitant]
     Dosage: UNK
     Dates: start: 20110101
  4. ACETAMINOPHEN [Concomitant]
     Dosage: UNK, AS NEEDED
  5. METHYCOBAL [Concomitant]
     Indication: HYPOAESTHESIA
     Dosage: UNK
     Dates: start: 20070801

REACTIONS (3)
  - ANAEMIA [None]
  - HYPOTENSION [None]
  - GASTRIC ULCER HAEMORRHAGE [None]
